FAERS Safety Report 12606660 (Version 1)
Quarter: 2016Q3

REPORT INFORMATION
  Report Type: Spontaneous
  Country: US (occurrence: US)
  Receive Date: 20160729
  Receipt Date: 20160729
  Transmission Date: 20161109
  Serious: Yes (Other)
  Sender: FDA-Public Use
  Company Number: US-ASTRAZENECA-2004UW01930

PATIENT
  Age: 68 Year
  Sex: Male
  Weight: 66.2 kg

DRUGS (5)
  1. NEXIUM [Suspect]
     Active Substance: ESOMEPRAZOLE MAGNESIUM
     Indication: GASTROOESOPHAGEAL REFLUX DISEASE
     Route: 048
     Dates: start: 200005
  2. NEXIUM [Suspect]
     Active Substance: ESOMEPRAZOLE MAGNESIUM
     Indication: GASTROOESOPHAGEAL REFLUX DISEASE
     Route: 048
     Dates: start: 2011, end: 20160505
  3. PHENOBARBITAL. [Concomitant]
     Active Substance: PHENOBARBITAL
  4. NEXIUM [Suspect]
     Active Substance: ESOMEPRAZOLE MAGNESIUM
     Indication: GASTROOESOPHAGEAL REFLUX DISEASE
     Route: 048
     Dates: start: 200005
  5. NEXIUM [Suspect]
     Active Substance: ESOMEPRAZOLE MAGNESIUM
     Indication: GASTROOESOPHAGEAL REFLUX DISEASE
     Route: 048
     Dates: start: 2011, end: 20160505

REACTIONS (28)
  - Cerebrovascular accident [Unknown]
  - Off label use [Unknown]
  - Drug ineffective [Unknown]
  - Breast mass [Unknown]
  - Condition aggravated [Unknown]
  - Scab [Unknown]
  - Swelling face [Unknown]
  - Cystitis [Unknown]
  - Pain [Unknown]
  - Body height decreased [Unknown]
  - Eye contusion [Unknown]
  - Thrombosis [Unknown]
  - Skin discolouration [Unknown]
  - Abdominal distension [Unknown]
  - Dizziness [Unknown]
  - Dysphagia [Unknown]
  - Abdominal pain [Unknown]
  - Myocardial infarction [Unknown]
  - Chromaturia [Not Recovered/Not Resolved]
  - Contusion [Unknown]
  - Oropharyngeal pain [Unknown]
  - Diarrhoea [Unknown]
  - Activities of daily living impaired [Unknown]
  - Skin exfoliation [Unknown]
  - Fall [Unknown]
  - Muscle disorder [Unknown]
  - Blister [Unknown]
  - Intentional product misuse [Unknown]

NARRATIVE: CASE EVENT DATE: 2000
